FAERS Safety Report 14064901 (Version 3)
Quarter: 2017Q4

REPORT INFORMATION
  Report Type: Report from Study
  Country: US (occurrence: US)
  Receive Date: 20171009
  Receipt Date: 20171019
  Transmission Date: 20180321
  Serious: Yes (Hospitalization)
  Sender: FDA-Public Use
  Company Number: US-PFIZER INC-2017420095

PATIENT
  Age: 76 Year
  Sex: Female
  Weight: 59 kg

DRUGS (7)
  1. CANNABIS [Concomitant]
     Active Substance: CANNABIS SATIVA SUBSP. INDICA TOP
  2. DALTEPARIN SODIUM [Suspect]
     Active Substance: DALTEPARIN SODIUM
     Indication: DEEP VEIN THROMBOSIS
  3. BENADRYL [Concomitant]
     Active Substance: DIPHENHYDRAMINE HYDROCHLORIDE
     Dosage: 25 MG, 3X/DAY
     Route: 048
  4. DURAGESIC [Concomitant]
     Active Substance: FENTANYL
     Dosage: 1 PATCH EVERY 3 DAYS
     Route: 062
  5. ATIVAN [Concomitant]
     Active Substance: LORAZEPAM
     Indication: ANXIETY
     Dosage: 1 DF, 4X/DAY, AS NEEDED
     Route: 048
  6. DALTEPARIN SODIUM [Suspect]
     Active Substance: DALTEPARIN SODIUM
     Indication: PULMONARY EMBOLISM
     Dosage: 10000 UNITS/1 ML, ONCE DAILY
     Route: 058
     Dates: start: 20170703
  7. DILAUDID [Concomitant]
     Active Substance: HYDROMORPHONE HYDROCHLORIDE
     Dosage: 2-4 MG BY MOUTH
     Route: 048

REACTIONS (1)
  - Seroma [Recovered/Resolved]

NARRATIVE: CASE EVENT DATE: 20170907
